FAERS Safety Report 21475673 (Version 4)
Quarter: 2022Q4

REPORT INFORMATION
  Report Type: Report from Study
  Country: BR (occurrence: BR)
  Receive Date: 20221019
  Receipt Date: 20221118
  Transmission Date: 20230112
  Serious: Yes (Other)
  Sender: FDA-Public Use
  Company Number: BR-JNJFOC-20221025438

PATIENT
  Age: 34 Year
  Sex: Female

DRUGS (2)
  1. SIMPONI [Suspect]
     Active Substance: GOLIMUMAB
     Indication: Rheumatoid arthritis
     Route: 058
     Dates: start: 20221003
  2. SIMPONI [Suspect]
     Active Substance: GOLIMUMAB

REACTIONS (9)
  - Haematochezia [Recovered/Resolved]
  - Nausea [Recovered/Resolved]
  - Insomnia [Recovered/Resolved]
  - Blood pressure fluctuation [Recovered/Resolved]
  - Dyspepsia [Recovered/Resolved]
  - Ageusia [Recovered/Resolved]
  - Pyrexia [Recovered/Resolved]
  - Diarrhoea [Recovered/Resolved]
  - Drug ineffective [Unknown]
